FAERS Safety Report 16279950 (Version 1)
Quarter: 2019Q2

REPORT INFORMATION
  Report Type: Report from Study
  Country: FR (occurrence: FR)
  Receive Date: 20190507
  Receipt Date: 20190507
  Transmission Date: 20190711
  Serious: Yes (Other)
  Sender: FDA-Public Use
  Company Number: FR-AUROBINDO-AUR-APL-2019-024627

PATIENT

DRUGS (1)
  1. RALOXIFENE. [Suspect]
     Active Substance: RALOXIFENE
     Indication: OSTEOPOROSIS
     Dosage: UNK
     Route: 065

REACTIONS (3)
  - Thoracic vertebral fracture [Unknown]
  - Lumbar vertebral fracture [Unknown]
  - Rebound effect [Unknown]
